FAERS Safety Report 18267809 (Version 1)
Quarter: 2020Q3

REPORT INFORMATION
  Report Type: Spontaneous
  Country: US (occurrence: US)
  Receive Date: 20200915
  Receipt Date: 20200915
  Transmission Date: 20201103
  Serious: Yes (Death)
  Sender: FDA-Public Use
  Company Number: None

PATIENT
  Age: 58 Year
  Sex: Female
  Weight: 97.98 kg

DRUGS (9)
  1. SPRYCEL [Suspect]
     Active Substance: DASATINIB
     Indication: CHRONIC LYMPHOCYTIC LEUKAEMIA
     Route: 048
     Dates: start: 20170713, end: 20200915
  2. ADDERALL XR [Concomitant]
     Active Substance: AMPHETAMINE ASPARTATE\AMPHETAMINE SULFATE\DEXTROAMPHETAMINE SACCHARATE\DEXTROAMPHETAMINE SULFATE
  3. ZYPREXA [Concomitant]
     Active Substance: OLANZAPINE
  4. ALLOPURINOL. [Concomitant]
     Active Substance: ALLOPURINOL
  5. DEPAKOTE [Concomitant]
     Active Substance: DIVALPROEX SODIUM
  6. HYDROXYUREA. [Concomitant]
     Active Substance: HYDROXYUREA
  7. LEVOXYL [Concomitant]
     Active Substance: LEVOTHYROXINE SODIUM
  8. CLARITIN [Concomitant]
     Active Substance: LORATADINE
  9. TYLENOL WITH CODEINE [Concomitant]
     Active Substance: ACETAMINOPHEN\CODEINE PHOSPHATE

REACTIONS (1)
  - Death [None]

NARRATIVE: CASE EVENT DATE: 20200915
